FAERS Safety Report 5702705-9 (Version None)
Quarter: 2008Q2

REPORT INFORMATION
  Report Type: 
  Country: None (occurrence: None)
  Receive Date: 20080411
  Receipt Date: 20080404
  Transmission Date: 20081010
  Serious: Yes (Other)
  Sender: FDA-Public Use
  Company Number: A0719381A

PATIENT
  Age: 70 Year
  Sex: Female

DRUGS (8)
  1. ADVAIR HFA [Suspect]
     Indication: CHRONIC OBSTRUCTIVE PULMONARY DISEASE
     Dosage: 1PUFF AT NIGHT
     Route: 055
     Dates: start: 20000101, end: 20071001
  2. CARTIA XT [Concomitant]
  3. DIOVAN HCT [Concomitant]
  4. LEVOTHYROXINE SODIUM [Concomitant]
  5. PRAVASTATIN [Concomitant]
  6. COMBIVENT [Concomitant]
  7. XALATAN [Concomitant]
  8. ASPIRIN [Concomitant]

REACTIONS (6)
  - CANDIDIASIS [None]
  - CHOKING [None]
  - HYPERSENSITIVITY [None]
  - TONGUE DISCOLOURATION [None]
  - TONGUE GEOGRAPHIC [None]
  - TREATMENT NONCOMPLIANCE [None]
